FAERS Safety Report 9140087 (Version 4)
Quarter: 2013Q1

REPORT INFORMATION
  Report Type: Spontaneous
  Country: GB (occurrence: GB)
  Receive Date: 20130305
  Receipt Date: 20130329
  Transmission Date: 20140127
  Serious: Yes (Other)
  Sender: FDA-Public Use
  Company Number: PHHY2013GB018302

PATIENT
  Age: 46 Year
  Sex: Female

DRUGS (29)
  1. MEROPENEM [Suspect]
     Dosage: 1 G, UNK
     Route: 042
     Dates: start: 20110905, end: 20110910
  2. VANCOMYCIN [Suspect]
     Dosage: 1 G, UNK
     Route: 065
     Dates: start: 20110904, end: 20110909
  3. TAZOCIN [Suspect]
     Indication: PRODUCT USED FOR UNKNOWN INDICATION
     Dosage: 4.5 G
     Route: 042
     Dates: start: 20110822, end: 20110825
  4. AMBISOME [Suspect]
     Indication: PRODUCT USED FOR UNKNOWN INDICATION
     Dosage: 1000 MG
     Route: 042
     Dates: start: 20110831, end: 20110831
  5. CYTARABINE [Suspect]
     Indication: MYELODYSPLASTIC SYNDROME
     Dates: start: 20110819, end: 20110828
  6. CYTARABINE [Suspect]
     Indication: ACUTE MYELOID LEUKAEMIA
  7. DAUNORUBICIN [Suspect]
     Indication: ACUTE MYELOID LEUKAEMIA
     Route: 065
     Dates: start: 20110819, end: 20110828
  8. DAUNORUBICIN [Suspect]
     Indication: MYELODYSPLASTIC SYNDROME
  9. ETOPOSIDE [Suspect]
     Indication: ACUTE MYELOID LEUKAEMIA
     Dates: start: 20110819, end: 20110828
  10. ETOPOSIDE [Suspect]
     Indication: MYELODYSPLASTIC SYNDROME
  11. GEMTUZUMAB OZOGAMICIN [Suspect]
     Indication: ACUTE MYELOID LEUKAEMIA
     Dosage: 3 MG
     Route: 065
     Dates: start: 20110819, end: 20110828
  12. GEMTUZUMAB OZOGAMICIN [Suspect]
     Indication: MYELODYSPLASTIC SYNDROME
  13. NORETHISTERONE [Suspect]
     Dosage: 5 G
     Dates: start: 20110818
  14. ALLOPURINOL [Concomitant]
     Route: 048
     Dates: start: 20110828, end: 20110908
  15. DOCUSATE SODIUM [Concomitant]
     Route: 048
     Dates: start: 20110823, end: 20110914
  16. CYCLIZINE [Concomitant]
     Route: 042
     Dates: start: 20110903, end: 20110914
  17. ACICLOVIR [Concomitant]
     Route: 048
  18. ACICLOVIR [Concomitant]
     Route: 048
  19. TRANEXAMIC ACID [Concomitant]
     Route: 048
     Dates: start: 20110831, end: 20110908
  20. LORAZEPAM [Concomitant]
     Route: 048
     Dates: start: 20110914, end: 20110914
  21. ONDANSETRON [Concomitant]
     Route: 048
     Dates: start: 20110822, end: 20110828
  22. PARACETAMOL [Concomitant]
     Route: 048
     Dates: start: 20110817, end: 20110828
  23. CODEINE [Concomitant]
     Route: 048
     Dates: start: 20110817, end: 20110820
  24. ORAMORPH [Concomitant]
     Route: 042
     Dates: start: 20110822, end: 20110823
  25. ORAMORPH [Concomitant]
     Dosage: 10 MG, 5 TO 10MG
     Route: 042
     Dates: start: 20110822, end: 20110823
  26. RANITIDINE [Concomitant]
     Route: 048
     Dates: start: 20110908, end: 20110912
  27. OMEPRAZOLE [Concomitant]
     Route: 048
     Dates: start: 20110820, end: 20110908
  28. ANTI-D IMMUNOGLOBULIN [Concomitant]
     Route: 058
     Dates: start: 20110902, end: 20110902
  29. MORPHINE SULFATE [Concomitant]

REACTIONS (2)
  - Alanine aminotransferase increased [Recovered/Resolved]
  - Platelet count increased [Recovered/Resolved]
